FAERS Safety Report 9735901 (Version 3)
Quarter: 2014Q1

REPORT INFORMATION
  Report Type: Report from Study
  Country: DE (occurrence: DE)
  Receive Date: 20131206
  Receipt Date: 20140129
  Transmission Date: 20141002
  Serious: Yes (Hospitalization)
  Sender: FDA-Public Use
  Company Number: DE-AMGEN-DEUCT2013085590

PATIENT
  Age: 76 Year
  Sex: Male
  Weight: 70 kg

DRUGS (7)
  1. ETANERCEPT [Suspect]
     Indication: PRODUCT USED FOR UNKNOWN INDICATION
     Dosage: 50 MG, WEEKLY
     Route: 065
     Dates: start: 201301, end: 201308
  2. PREDNISOLON                        /00016201/ [Concomitant]
     Indication: RHEUMATOID ARTHRITIS
     Dosage: UNK
     Route: 048
  3. TILIDINE [Concomitant]
     Indication: PAIN
     Dosage: 50/4, UNK
     Route: 048
  4. L-THYROXIN [Concomitant]
     Indication: HYPOTHYROIDISM
     Dosage: UNK
     Route: 048
  5. PANTOPRAZOLE [Concomitant]
     Indication: GASTRITIS
     Dosage: 20, UNK
     Route: 048
  6. VIGANTOLETTEN [Concomitant]
     Indication: HYPOVITAMINOSIS
     Dosage: UNK
     Route: 048
  7. VIGANTOLETTEN [Concomitant]
     Indication: HYPOVITAMINOSIS

REACTIONS (1)
  - Rheumatoid arthritis [Recovered/Resolved]
